FAERS Safety Report 6268545-X (Version None)
Quarter: 2009Q3

REPORT INFORMATION
  Report Type: 
  Country: None (occurrence: None)
  Receive Date: 20090713
  Receipt Date: 20090713
  Transmission Date: 20100115
  Serious: No
  Sender: FDA-Public Use
  Company Number: None

PATIENT
  Sex: Male
  Weight: 81.6475 kg

DRUGS (1)
  1. VENTOLIN [Suspect]
     Indication: ASTHMA
     Dosage: 2 PUFFS 1-2 TIMES DAILY INHAL (DURATION: WEEKS)
     Route: 055
     Dates: start: 20071020, end: 20071114

REACTIONS (3)
  - EAR PAIN [None]
  - INFLUENZA [None]
  - OROPHARYNGEAL PAIN [None]
